FAERS Safety Report 5762455-X (Version None)
Quarter: 2008Q2

REPORT INFORMATION
  Report Type: 
  Country: None (occurrence: None)
  Receive Date: 20080609
  Receipt Date: 20080602
  Transmission Date: 20081010
  Serious: Yes (Life-Threatening, Hospitalization)
  Sender: FDA-Public Use
  Company Number: DE-BAYER-200815505GPV

PATIENT
  Age: 63 Year
  Sex: Female
  Weight: 64 kg

DRUGS (2)
  1. MAGNEVIST [Suspect]
     Indication: ABDOMINAL X-RAY
     Route: 065
     Dates: start: 20080325, end: 20080325
  2. ASTHMA SPRAY [Concomitant]
     Indication: ASTHMA

REACTIONS (2)
  - APNOEA [None]
  - CYANOSIS [None]
